FAERS Safety Report 7067207-9 (Version None)
Quarter: 2010Q4

REPORT INFORMATION
  Report Type: 
  Country: None (occurrence: None)
  Receive Date: 20101028
  Receipt Date: 20101019
  Transmission Date: 20110411
  Serious: No
  Sender: FDA-Public Use
  Company Number: 2009BI011172

PATIENT
  Sex: Female

DRUGS (1)
  1. TYSABRI [Suspect]
     Indication: MULTIPLE SCLEROSIS
     Route: 042
     Dates: start: 20090428, end: 20090624

REACTIONS (5)
  - HEADACHE [None]
  - MUSCLE STRAIN [None]
  - OVERWEIGHT [None]
  - PAIN IN EXTREMITY [None]
  - SPINAL DISORDER [None]
